FAERS Safety Report 4896635-2 (Version None)
Quarter: 2006Q1

REPORT INFORMATION
  Report Type: 
  Country: None (occurrence: None)
  Receive Date: 20060131
  Receipt Date: 20060119
  Transmission Date: 20060701
  Serious: Yes (Hospitalization)
  Sender: FDA-Public Use
  Company Number: FR-ROCHE-432676

PATIENT
  Age: 43 Year
  Sex: Female

DRUGS (6)
  1. VESANOID [Suspect]
     Route: 065
     Dates: start: 20050909, end: 20050920
  2. HEPARIN [Suspect]
     Indication: PROPHYLAXIS
     Route: 042
     Dates: start: 20050909, end: 20050920
  3. CLAVENTIN [Concomitant]
     Indication: PYREXIA
     Route: 042
     Dates: start: 20050911, end: 20050920
  4. MOPRAL [Concomitant]
     Dates: start: 20050910, end: 20050913
  5. VANCOMYCIN [Concomitant]
     Indication: PYREXIA
     Route: 042
     Dates: start: 20050911, end: 20050920
  6. ARACYTINE [Concomitant]
     Dates: start: 20050913

REACTIONS (2)
  - ECZEMA [None]
  - VASCULAR PURPURA [None]
